FAERS Safety Report 4655002-7 (Version None)
Quarter: 2005Q2

REPORT INFORMATION
  Report Type: 
  Country: None (occurrence: None)
  Receive Date: 20050504
  Receipt Date: 20050426
  Transmission Date: 20051028
  Serious: Yes (Other)
  Sender: FDA-Public Use
  Company Number: 200511749BCC

PATIENT
  Sex: Female

DRUGS (2)
  1. ASPIRIN [Suspect]
     Dosage: ORAL
     Route: 048
  2. COUMADIN [Suspect]

REACTIONS (4)
  - BLOOD DISORDER [None]
  - HAEMORRHAGE [None]
  - OVERDOSE [None]
  - RENAL FAILURE [None]
